FAERS Safety Report 18859022 (Version 1)
Quarter: 2021Q1

REPORT INFORMATION
  Report Type: Spontaneous
  Country: US (occurrence: US)
  Receive Date: 20210205
  Receipt Date: 20210205
  Transmission Date: 20210420
  Serious: Yes (Hospitalization)
  Sender: FDA-Public Use
  Company Number: None

PATIENT
  Age: 42 Year
  Sex: Female

DRUGS (4)
  1. METHYLPREDNISOLONE. [Concomitant]
     Active Substance: METHYLPREDNISOLONE
  2. AXICABTAGENE CILOLEUCEL. [Concomitant]
     Active Substance: AXICABTAGENE CILOLEUCEL
  3. TOCILIZUMAB. [Concomitant]
     Active Substance: TOCILIZUMAB
  4. YESCARTA [Suspect]
     Active Substance: AXICABTAGENE CILOLEUCEL

REACTIONS (8)
  - Lymphocyte adoptive therapy [None]
  - Cerebrovascular accident [None]
  - Parkinsonism [None]
  - Cytokine release syndrome [None]
  - Pneumothorax [None]
  - Immune effector cell-associated neurotoxicity syndrome [None]
  - Complication associated with device [None]
  - Hypotension [None]

NARRATIVE: CASE EVENT DATE: 20210122
